FAERS Safety Report 20869594 (Version 2)
Quarter: 2022Q2

REPORT INFORMATION
  Report Type: Spontaneous
  Country: DE (occurrence: DE)
  Receive Date: 20220525
  Receipt Date: 20220613
  Transmission Date: 20220720
  Serious: Yes (Other)
  Sender: FDA-Public Use
  Company Number: DE-BEH-2022145637

PATIENT
  Sex: Female

DRUGS (4)
  1. FACTOR XIII CONCENTRATE (HUMAN) [Suspect]
     Active Substance: FACTOR XIII CONCENTRATE (HUMAN)
     Indication: Factor XIII deficiency
     Dosage: 2500 INTERNATIONAL UNIT, Q3W
     Route: 065
  2. FACTOR XIII CONCENTRATE (HUMAN) [Suspect]
     Active Substance: FACTOR XIII CONCENTRATE (HUMAN)
     Dosage: 2500 INTERNATIONAL UNIT
     Route: 065
  3. FACTOR XIII CONCENTRATE (HUMAN) [Suspect]
     Active Substance: FACTOR XIII CONCENTRATE (HUMAN)
     Dosage: 2500 INTERNATIONAL UNIT
     Route: 065
  4. FACTOR XIII CONCENTRATE (HUMAN) [Suspect]
     Active Substance: FACTOR XIII CONCENTRATE (HUMAN)
     Dosage: 2500 INTERNATIONAL UNIT, QW
     Route: 065

REACTIONS (2)
  - Abortion spontaneous [Unknown]
  - Maternal exposure during pregnancy [Unknown]
